FAERS Safety Report 10591709 (Version 1)
Quarter: 2014Q4

REPORT INFORMATION
  Report Type: Spontaneous
  Country: ES (occurrence: ES)
  Receive Date: 20141118
  Receipt Date: 20141118
  Transmission Date: 20150529
  Serious: Yes (Other)
  Sender: FDA-Public Use
  Company Number: ES-MYLANLABS-2014M1010533

PATIENT

DRUGS (1)
  1. DEXAMETHASONE. [Suspect]
     Active Substance: DEXAMETHASONE
     Dosage: 23 MG/KG/DAY STARTED AT 4+5 WEEKS GESTATION AND CONTINUED UNTIL TERM

REACTIONS (5)
  - Adrenogenital syndrome [None]
  - Foetal exposure during pregnancy [Unknown]
  - Maternal drugs affecting foetus [None]
  - Premature baby [Unknown]
  - Enlarged clitoris [None]
